FAERS Safety Report 12074959 (Version 1)
Quarter: 2016Q1

REPORT INFORMATION
  Report Type: Spontaneous
  Country: GB (occurrence: GB)
  Receive Date: 20160212
  Receipt Date: 20160212
  Transmission Date: 20160526
  Serious: Yes (Hospitalization, Other)
  Sender: FDA-Public Use
  Company Number: GB-GLAXOSMITHKLINE-GB2016017839

PATIENT
  Age: 24 Year
  Sex: Male
  Weight: 77 kg

DRUGS (8)
  1. CLARITHROMYCIN. [Concomitant]
     Active Substance: CLARITHROMYCIN
     Route: 048
     Dates: start: 20160125, end: 20160128
  2. MIGRALEVE [Concomitant]
     Active Substance: ACETAMINOPHEN\BUCLIZINE HYDROCHLORIDE\CODEINE
  3. ACICLOVIR [Suspect]
     Active Substance: ACYCLOVIR
     Indication: MENINGITIS
     Dosage: 800 MG, TID
     Route: 042
     Dates: start: 20160123, end: 20160128
  4. CO-AMOXICLAV [Concomitant]
     Active Substance: AMOXICILLIN\CLAVULANIC ACID
     Route: 042
     Dates: start: 20160128
  5. SLOW SODIUM [Concomitant]
     Dates: start: 20160128, end: 20160129
  6. AMITRIPTYLINE [Concomitant]
     Active Substance: AMITRIPTYLINE
     Dosage: AT NIGHT
  7. CEFTRIAXONE. [Concomitant]
     Active Substance: CEFTRIAXONE
     Route: 042
     Dates: start: 20160123, end: 20160129
  8. TINZAPARIN [Concomitant]
     Active Substance: TINZAPARIN
     Dates: start: 20160125, end: 20160127

REACTIONS (3)
  - Renal tubular necrosis [Unknown]
  - Acute kidney injury [Unknown]
  - Polyuria [Unknown]
